FAERS Safety Report 6552554-7 (Version None)
Quarter: 2010Q1

REPORT INFORMATION
  Report Type: 
  Country: None (occurrence: None)
  Receive Date: 20100126
  Receipt Date: 20100113
  Transmission Date: 20100710
  Serious: Yes (Hospitalization)
  Sender: FDA-Public Use
  Company Number: IT-PFIZER INC-2008155652

PATIENT
  Age: 68 Year
  Sex: Male

DRUGS (4)
  1. SUNITINIB MALATE [Suspect]
     Indication: METASTATIC RENAL CELL CARCINOMA
     Dosage: 50 MG, 1X/DAY
     Route: 048
     Dates: start: 20070404, end: 20081117
  2. EUTIROX [Concomitant]
     Dosage: UNK
     Route: 048
     Dates: start: 20080625
  3. TERAPROST [Concomitant]
     Dosage: UNK
     Route: 048
     Dates: start: 20071101
  4. ZANEDIP [Concomitant]
     Dosage: UNK
     Route: 048
     Dates: start: 20061101

REACTIONS (1)
  - RETROPERITONEAL ABSCESS [None]
